FAERS Safety Report 14242675 (Version 5)
Quarter: 2018Q1

REPORT INFORMATION
  Report Type: Report from Study
  Country: IN (occurrence: IN)
  Receive Date: 20171201
  Receipt Date: 20180226
  Transmission Date: 20180508
  Serious: Yes (Hospitalization, Other)
  Sender: FDA-Public Use
  Company Number: IN-TORRENT-00001438

PATIENT
  Age: 32 Year
  Sex: Male
  Weight: 51 kg

DRUGS (1)
  1. QUETIAPINE FUMARATE. [Suspect]
     Active Substance: QUETIAPINE FUMARATE
     Indication: PRODUCT USED FOR UNKNOWN INDICATION
     Dosage: SINGLE DOSE
     Route: 048
     Dates: start: 20171031, end: 20171031

REACTIONS (7)
  - Abdominal pain [Recovered/Resolved]
  - Multiple injuries [Recovered/Resolved]
  - Abdominal injury [Recovered/Resolved]
  - Spinal fracture [Recovered/Resolved]
  - Renal injury [Recovered/Resolved]
  - Peritoneal haemorrhage [Recovered/Resolved]
  - Road traffic accident [Unknown]

NARRATIVE: CASE EVENT DATE: 20171116
